FAERS Safety Report 22834707 (Version 11)
Quarter: 2024Q2

REPORT INFORMATION
  Report Type: Report from Study
  Country: US (occurrence: US)
  Receive Date: 20230817
  Receipt Date: 20240602
  Transmission Date: 20240715
  Serious: Yes (Hospitalization, Other)
  Sender: FDA-Public Use
  Company Number: US-ABBVIE-5370141

PATIENT
  Sex: Male
  Weight: 103 kg

DRUGS (21)
  1. VENCLEXTA [Suspect]
     Active Substance: VENETOCLAX
     Indication: Waldenstrom^s macroglobulinaemia
     Dosage: WEEK 2?FORM STRENGTH: 50 MILLIGRAM?FIRST ADMIN AND LAST ADMIN DATE: 2023
     Route: 048
  2. VENCLEXTA [Suspect]
     Active Substance: VENETOCLAX
     Indication: Waldenstrom^s macroglobulinaemia
     Dosage: WEEK 1?FORM STRENGTH: 10 MILLIGRAM?STOP DATE: JUL 2023
     Route: 048
     Dates: start: 20230717
  3. VENCLEXTA [Suspect]
     Active Substance: VENETOCLAX
     Indication: Waldenstrom^s macroglobulinaemia
     Dosage: FORM STRENGTH: 100 MILLIGRAM WEEK 3?START DATE: 2023?STOP DATE: 2023
     Route: 048
  4. VENCLEXTA [Suspect]
     Active Substance: VENETOCLAX
     Indication: Waldenstrom^s macroglobulinaemia
     Dosage: STOP DATE: AUG 2023
     Route: 048
     Dates: start: 20230818
  5. VENCLEXTA [Suspect]
     Active Substance: VENETOCLAX
     Indication: Waldenstrom^s macroglobulinaemia
     Dosage: START DATE: 2023?100 MG TABLET 3 TABLET DAILY
     Route: 048
  6. VENCLEXTA [Suspect]
     Active Substance: VENETOCLAX
     Indication: Waldenstrom^s macroglobulinaemia
     Dosage: 2X100MG TABS, WEEK 4?FORM STRENGTH: 100 MILLIGRAM?START DATE: AUG 2023
     Route: 048
     Dates: start: 20230814, end: 20230815
  7. VENCLEXTA [Suspect]
     Active Substance: VENETOCLAX
     Indication: Waldenstrom^s macroglobulinaemia
     Dosage: 100 MG 2 TABLET DAILY
     Route: 048
     Dates: start: 20231123
  8. ALLOPURINOL [Concomitant]
     Active Substance: ALLOPURINOL
     Indication: Product used for unknown indication
     Route: 065
  9. METFORMIN [Concomitant]
     Active Substance: METFORMIN HYDROCHLORIDE
     Indication: Product used for unknown indication
     Dosage: BID
     Route: 048
  10. OLMESARTAN [Concomitant]
     Active Substance: OLMESARTAN
     Indication: Product used for unknown indication
     Dosage: FORM STRENGTH: 40 MILLIGRAM
     Route: 048
  11. TAMSULOSIN [Concomitant]
     Active Substance: TAMSULOSIN
     Indication: Product used for unknown indication
     Dosage: AT BEDTIME
     Route: 048
  12. LANTUS [Concomitant]
     Active Substance: INSULIN GLARGINE
     Indication: Product used for unknown indication
     Dosage: 100 UNIT/ML
     Route: 058
  13. ASPIRIN [Concomitant]
     Active Substance: ASPIRIN
     Indication: Product used for unknown indication
     Route: 048
  14. AMLODIPINE [Concomitant]
     Active Substance: AMLODIPINE BESYLATE
     Indication: Product used for unknown indication
     Dosage: FORM STRENGTH: 5 MILLIGRAM
     Route: 048
  15. ATORVASTATIN [Concomitant]
     Active Substance: ATORVASTATIN
     Indication: Product used for unknown indication
     Dosage: FORM STRENGTH: 20 MILLIGRAM
     Route: 048
  16. ATORVASTATIN [Concomitant]
     Active Substance: ATORVASTATIN
     Indication: Product used for unknown indication
     Route: 048
  17. FUROSEMIDE [Concomitant]
     Active Substance: FUROSEMIDE
     Indication: Product used for unknown indication
     Dosage: FORM STRENGTH: 20 MILLIGRAM
     Route: 048
  18. NOVOLOG [Concomitant]
     Active Substance: INSULIN ASPART
     Indication: Product used for unknown indication
     Dosage: 5 TO 10 UNITS
     Route: 058
  19. ZYLOPRIM [Concomitant]
     Active Substance: ALLOPURINOL
     Indication: Product used for unknown indication
     Dosage: FORM STRENGTH: 300 MILLIGRAM
     Route: 048
  20. SERTRALINE [Concomitant]
     Active Substance: SERTRALINE HYDROCHLORIDE
     Indication: Product used for unknown indication
     Route: 048
  21. LEVOTHYROXINE [Concomitant]
     Active Substance: LEVOTHYROXINE\LEVOTHYROXINE SODIUM
     Indication: Product used for unknown indication
     Route: 048

REACTIONS (34)
  - Cardiac operation [Unknown]
  - Hypertension [Unknown]
  - Dyspnoea [Recovered/Resolved]
  - Constipation [Unknown]
  - Fatigue [Unknown]
  - Constipation [Recovered/Resolved]
  - Stomatitis [Recovered/Resolved]
  - Cough [Recovered/Resolved]
  - Depression [Recovered/Resolved]
  - Insomnia [Unknown]
  - Pain [Unknown]
  - Hypoaesthesia [Recovered/Resolved]
  - Off label use [Unknown]
  - Diverticulitis [Unknown]
  - Headache [Unknown]
  - Abdominal pain [Unknown]
  - Diarrhoea [Recovered/Resolved]
  - Blood pressure increased [Unknown]
  - Nocturia [Unknown]
  - Gait disturbance [Unknown]
  - Speech disorder [Unknown]
  - Memory impairment [Unknown]
  - Pain [Recovered/Resolved]
  - Diarrhoea [Unknown]
  - Memory impairment [Unknown]
  - Nausea [Unknown]
  - Nausea [Recovered/Resolved]
  - Cerebrovascular accident [Unknown]
  - Hypercholesterolaemia [Unknown]
  - Decreased appetite [Unknown]
  - Hypoaesthesia [Unknown]
  - Dyspnoea [Unknown]
  - Oedema peripheral [Unknown]
  - Blood immunoglobulin M decreased [Unknown]

NARRATIVE: CASE EVENT DATE: 20230101
